FAERS Safety Report 9737236 (Version 1)
Quarter: 2013Q4

REPORT INFORMATION
  Report Type: Report from Study
  Country: CA (occurrence: CA)
  Receive Date: 20131206
  Receipt Date: 20131206
  Transmission Date: 20140711
  Serious: Yes (Death)
  Sender: FDA-Public Use
  Company Number: CA-ROCHE-1309641

PATIENT
  Sex: Female

DRUGS (6)
  1. XELODA [Suspect]
     Indication: PRODUCT USED FOR UNKNOWN INDICATION
     Route: 048
     Dates: start: 20130502
  2. SYNTHROID [Concomitant]
  3. CLONIDINE [Concomitant]
  4. PROZAC [Concomitant]
  5. TECTA [Concomitant]
  6. MAXERAN [Concomitant]

REACTIONS (2)
  - Death [Fatal]
  - Off label use [Unknown]
